FAERS Safety Report 14239573 (Version 1)
Quarter: 2017Q4

REPORT INFORMATION
  Report Type: Spontaneous
  Country: US (occurrence: None)
  Receive Date: 20171130
  Receipt Date: 20171130
  Transmission Date: 20180321
  Serious: No
  Sender: FDA-Public Use
  Company Number: None

PATIENT
  Age: 56 Year
  Sex: Male

DRUGS (26)
  1. DELATESTRYL [Concomitant]
     Active Substance: TESTOSTERONE ENANTHATE
  2. PRAVASTATIN. [Concomitant]
     Active Substance: PRAVASTATIN
  3. DULERA [Concomitant]
     Active Substance: FORMOTEROL FUMARATE DIHYDRATE\MOMETASONE FUROATE
  4. NORTRIPTYLINE [Concomitant]
     Active Substance: NORTRIPTYLINE
  5. NASALIDE [Concomitant]
     Active Substance: FLUNISOLIDE
  6. GARAMYCIN [Concomitant]
     Active Substance: GENTAMICIN SULFATE
  7. LISINOPRIL. [Concomitant]
     Active Substance: LISINOPRIL
  8. ALLOPURINOL. [Concomitant]
     Active Substance: ALLOPURINOL
  9. SINGULAIR [Concomitant]
     Active Substance: MONTELUKAST SODIUM
  10. VENTOLIN HFA [Concomitant]
     Active Substance: ALBUTEROL SULFATE
  11. LOMOTIL [Concomitant]
     Active Substance: ATROPINE SULFATE\DIPHENOXYLATE HYDROCHLORIDE
  12. CALCIUM ACETATE. [Concomitant]
     Active Substance: CALCIUM ACETATE
  13. GLUCOSAMINE [Concomitant]
     Active Substance: GLUCOSAMINE
  14. ISENTRESS [Concomitant]
     Active Substance: RALTEGRAVIR POTASSIUM
  15. ZOVIRAX [Concomitant]
     Active Substance: ACYCLOVIR
  16. COLACE [Concomitant]
     Active Substance: DOCUSATE SODIUM
  17. BUMEX [Concomitant]
     Active Substance: BUMETANIDE
  18. COREG [Concomitant]
     Active Substance: CARVEDILOL
  19. NEXIUM [Concomitant]
     Active Substance: ESOMEPRAZOLE MAGNESIUM
  20. RITALIN [Concomitant]
     Active Substance: METHYLPHENIDATE HYDROCHLORIDE
  21. CLONIDINE. [Concomitant]
     Active Substance: CLONIDINE
  22. SILDENAFIL. [Concomitant]
     Active Substance: SILDENAFIL
  23. SEROSTIM [Suspect]
     Active Substance: SOMATROPIN
     Indication: LIPODYSTROPHY ACQUIRED
  24. NORVIR [Concomitant]
     Active Substance: RITONAVIR
  25. PREZISTA [Concomitant]
     Active Substance: DARUNAVIR ETHANOLATE
  26. MVI [Concomitant]
     Active Substance: VITAMINS

REACTIONS (1)
  - Off label use [None]

NARRATIVE: CASE EVENT DATE: 20171128
